FAERS Safety Report 10925598 (Version 1)
Quarter: 2015Q1

REPORT INFORMATION
  Report Type: Spontaneous
  Country: GB (occurrence: GB)
  Receive Date: 20150318
  Receipt Date: 20150318
  Transmission Date: 20150721
  Serious: Yes (Death, Hospitalization)
  Sender: FDA-Public Use
  Company Number: GB-PFIZER INC-2015090073

PATIENT
  Age: 59 Year
  Sex: Male
  Weight: 127 kg

DRUGS (10)
  1. AFLIBERCEPT [Suspect]
     Active Substance: AFLIBERCEPT
     Indication: COLORECTAL CANCER METASTATIC
     Dosage: 4 MG/KG, CYCLIC
     Route: 042
     Dates: start: 20141001, end: 20141001
  2. AFLIBERCEPT [Suspect]
     Active Substance: AFLIBERCEPT
     Dosage: 4 MG/KG, CYCLIC (CYCLE 3)
     Route: 042
     Dates: start: 20141029, end: 20141029
  3. 5-FU [Concomitant]
     Active Substance: FLUOROURACIL
     Indication: COLORECTAL CANCER METASTATIC
     Dosage: 825 MG, CYCLIC
     Route: 042
     Dates: start: 20141001, end: 20141001
  4. 5-FU [Concomitant]
     Active Substance: FLUOROURACIL
     Dosage: 5100 MG, CYCLIC
     Route: 042
     Dates: start: 20141029, end: 20141029
  5. 5-FU [Concomitant]
     Active Substance: FLUOROURACIL
     Dosage: 825 MG, CYCLIC
     Route: 042
     Dates: start: 20141029, end: 20141029
  6. FOLINIC ACID [Concomitant]
     Active Substance: LEUCOVORIN
     Dosage: 350 MG, CYCLIC
     Route: 042
     Dates: start: 20141029, end: 20141029
  7. IRINOTECAN HCL [Suspect]
     Active Substance: IRINOTECAN HYDROCHLORIDE
     Dosage: 380 MG, CYCLIC
     Route: 042
     Dates: start: 20141029, end: 20141029
  8. IRINOTECAN HCL [Suspect]
     Active Substance: IRINOTECAN HYDROCHLORIDE
     Indication: COLORECTAL CANCER METASTATIC
     Dosage: 380 MG, CYCLIC
     Route: 042
     Dates: start: 20141001, end: 20141001
  9. FOLINIC ACID [Concomitant]
     Active Substance: LEUCOVORIN
     Indication: COLORECTAL CANCER METASTATIC
     Dosage: 350 MG, CYCLIC
     Route: 042
     Dates: start: 20141001, end: 20141001
  10. 5-FU [Concomitant]
     Active Substance: FLUOROURACIL
     Dosage: 5100 MG, CYCLIC
     Route: 042
     Dates: start: 20141001, end: 20141001

REACTIONS (6)
  - Pneumonitis [Fatal]
  - Respiratory failure [Fatal]
  - Colorectal cancer metastatic [Fatal]
  - Dyspnoea [Fatal]
  - Disease progression [Fatal]
  - Pulmonary haemorrhage [Fatal]

NARRATIVE: CASE EVENT DATE: 20141110
